FAERS Safety Report 6417013-0 (Version None)
Quarter: 2009Q4

REPORT INFORMATION
  Report Type: 
  Country: None (occurrence: None)
  Receive Date: 20091019
  Receipt Date: 20091013
  Transmission Date: 20100525
  Serious: Yes (Other)
  Sender: FDA-Public Use
  Company Number: JHP200900318

PATIENT
  Age: 58 Year
  Sex: Male

DRUGS (1)
  1. APLISOL [Suspect]
     Indication: TUBERCULIN TEST
     Dosage: INTRADERMAL
     Route: 023

REACTIONS (1)
  - KOEBNER PHENOMENON [None]
